FAERS Safety Report 21872530 (Version 3)
Quarter: 2023Q4

REPORT INFORMATION
  Report Type: Spontaneous
  Country: GB (occurrence: GB)
  Receive Date: 20230117
  Receipt Date: 20231229
  Transmission Date: 20240110
  Serious: No
  Sender: FDA-Public Use
  Company Number: GB-Albireo AB-2023ALB000011

PATIENT

DRUGS (2)
  1. BYLVAY [Suspect]
     Active Substance: ODEVIXIBAT
     Indication: Progressive familial intrahepatic cholestasis
     Route: 065
     Dates: end: 20230105
  2. BYLVAY [Suspect]
     Active Substance: ODEVIXIBAT
     Route: 065
     Dates: start: 2023

REACTIONS (2)
  - Liver function test increased [Recovered/Resolved]
  - Therapeutic product effect decreased [Unknown]
